FAERS Safety Report 17356544 (Version 1)
Quarter: 2020Q1

REPORT INFORMATION
  Report Type: Other
  Country: US (occurrence: US)
  Receive Date: 20200131
  Receipt Date: 20200131
  Transmission Date: 20200409
  Serious: No
  Sender: FDA-Public Use
  Company Number: US-LEADIANT BIOSCIENCES INC-2019STPI000556

PATIENT

DRUGS (5)
  1. NORTREL [LEVONORGESTREL] [Concomitant]
  2. REVCOVI [Suspect]
     Active Substance: ELAPEGADEMASE-LVLR
     Indication: COMBINED IMMUNODEFICIENCY
     Dosage: 7.2 MILLIGRAM, Q2W
     Route: 030
     Dates: start: 20190118
  3. B COMPLEX [VITAMIN B COMPLEX] [Concomitant]
  4. VITAMIN D [VITAMIN D NOS] [Concomitant]
     Active Substance: VITAMIN D NOS
     Dosage: UNK UNK, Q2W
  5. OSELTAMIVIR [Concomitant]
     Active Substance: OSELTAMIVIR

REACTIONS (1)
  - Injection site pain [Not Recovered/Not Resolved]
